FAERS Safety Report 5567405-7 (Version None)
Quarter: 2007Q4

REPORT INFORMATION
  Report Type: 
  Country: None (occurrence: None)
  Receive Date: 20071130
  Receipt Date: 20070910
  Transmission Date: 20080405
  Serious: No
  Sender: FDA-Public Use
  Company Number: US200709002038

PATIENT
  Age: 50 Year
  Sex: Female
  Weight: 62 kg

DRUGS (4)
  1. BYETTA [Suspect]
     Indication: TYPE 2 DIABETES MELLITUS
     Dosage: 5 UG, 2/D, SUBCUTANEOUS
     Route: 058
     Dates: start: 20061201, end: 20070101
  2. BYETTA [Suspect]
     Indication: TYPE 2 DIABETES MELLITUS
     Dosage: 5 UG, 2/D, SUBCUTANEOUS
     Route: 058
     Dates: start: 20070101
  3. EXENATIDE 10MCG, PEN, DISPOSABLE DEVICE (EXENATIDE PEN (10MCG)) PEN,DI [Concomitant]
  4. ACTOS [Concomitant]

REACTIONS (4)
  - FATIGUE [None]
  - HEADACHE [None]
  - PYREXIA [None]
  - THYROID MASS [None]
